FAERS Safety Report 24635930 (Version 1)
Quarter: 2024Q4

REPORT INFORMATION
  Report Type: Spontaneous
  Country: US (occurrence: US)
  Receive Date: 20241119
  Receipt Date: 20241119
  Transmission Date: 20250114
  Serious: No
  Sender: CATALYST PHARMA
  Company Number: US-CATALYST PHARMACEUTICALS-US-CATA-24-01122

PATIENT
  Age: 13 Year
  Sex: Male
  Weight: 34.1 kg

DRUGS (3)
  1. AGAMREE [Suspect]
     Active Substance: VAMOROLONE
     Indication: Duchenne muscular dystrophy
     Dosage: 6 ML DAILY INSTEAD OF THE PRESCRIBED 5.1 ML DAILY
     Route: 048
     Dates: start: 20240904, end: 20241003
  2. AGAMREE [Suspect]
     Active Substance: VAMOROLONE
     Dosage: 5.1 ML DAILY
     Route: 048
     Dates: start: 20241003
  3. QBRELIS [Concomitant]
     Active Substance: LISINOPRIL
     Indication: Cardiovascular disorder
     Dosage: 1.25 MG DAILY
     Route: 048

REACTIONS (1)
  - Incorrect dose administered [Unknown]

NARRATIVE: CASE EVENT DATE: 20240904
